FAERS Safety Report 4736367-4 (Version None)
Quarter: 2005Q3

REPORT INFORMATION
  Report Type: 
  Country: None (occurrence: None)
  Receive Date: 20050804
  Receipt Date: 20050722
  Transmission Date: 20060218
  Serious: Yes (Other)
  Sender: FDA-Public Use
  Company Number: 2005095330

PATIENT
  Sex: Female
  Weight: 66.6788 kg

DRUGS (9)
  1. ROGAINE [Suspect]
     Indication: HYPOTRICHOSIS
     Dosage: UNSPECIFIED AMOUNT QD, TOPICAL
     Route: 061
     Dates: end: 20050601
  2. ESOMEPRAZOLE (ESOMEPRAZOLE) [Concomitant]
  3. UNDECYLENIC ACID (UNDECYLENIC ACID0 [Concomitant]
  4. CHLOROXYLENOL (CHLOROXYLENOL) [Concomitant]
  5. SALICYLIC ACID (SALICYLIC ACID) [Concomitant]
  6. WHITE SOFT PARAFFIN (WHITE SOFT PARAFFIN) [Concomitant]
  7. FLUOCINOLONE ACETONIDE (FLUOCINOLONE ACETONIDE) [Concomitant]
  8. TRETINOIN [Concomitant]
  9. HYDROQUINONE (HYDROQUINONE) [Concomitant]

REACTIONS (5)
  - CONDITION AGGRAVATED [None]
  - FEMALE PATTERN BALDNESS [None]
  - GASTRIC DISORDER [None]
  - PRECANCEROUS CELLS PRESENT [None]
  - SYSTEMIC LUPUS ERYTHEMATOSUS [None]
